FAERS Safety Report 6705392-6 (Version None)
Quarter: 2010Q2

REPORT INFORMATION
  Report Type: 
  Country: None (occurrence: None)
  Receive Date: 20100503
  Receipt Date: 20100422
  Transmission Date: 20101027
  Serious: Yes (Hospitalization)
  Sender: FDA-Public Use
  Company Number: 2005BI020674

PATIENT
  Age: 59 Year
  Sex: Female
  Weight: 70 kg

DRUGS (3)
  1. AVONEX [Suspect]
     Indication: MULTIPLE SCLEROSIS
     Route: 030
     Dates: start: 19991014
  2. AVONEX [Suspect]
     Route: 030
     Dates: start: 20030101
  3. PROZAC [Concomitant]
     Indication: DEPRESSION

REACTIONS (6)
  - ABNORMAL DREAMS [None]
  - ARTHRITIS [None]
  - BALANCE DISORDER [None]
  - DIPLOPIA [None]
  - DRUG INEFFECTIVE [None]
  - FALL [None]
